FAERS Safety Report 9106406 (Version 1)
Quarter: 2013Q1

REPORT INFORMATION
  Report Type: Report from Study
  Country: TR (occurrence: TR)
  Receive Date: 20130221
  Receipt Date: 20130221
  Transmission Date: 20140127
  Serious: Yes (Death)
  Sender: FDA-Public Use
  Company Number: TR-ROCHE-1192110

PATIENT
  Age: 66 Year
  Sex: Female
  Weight: 56 kg

DRUGS (2)
  1. PEG-INTERFERON ALFA 2A [Suspect]
     Indication: CHRONIC HEPATITIS B
     Dosage: MOST RECENT DOSE PRIOR TO SAE ON 19/JUL/2012
     Route: 058
     Dates: start: 20100923
  2. TENOFOVIR [Suspect]
     Indication: CHRONIC HEPATITIS B
     Dosage: MOST RECENT DOSE PRIOR TO SAE ON 29/JUL/2012
     Route: 048
     Dates: start: 20100923

REACTIONS (8)
  - Pneumonia aspiration [Fatal]
  - Ascites [None]
  - Pleural effusion [None]
  - Atelectasis [None]
  - Glioma [None]
  - Hepatic cirrhosis [None]
  - Disease progression [None]
  - Hepatic encephalopathy [None]
